FAERS Safety Report 20099349 (Version 1)
Quarter: 2021Q4

REPORT INFORMATION
  Report Type: Report from Study
  Country: DE (occurrence: DE)
  Receive Date: 20211122
  Receipt Date: 20211122
  Transmission Date: 20220303
  Serious: Yes (Other)
  Sender: FDA-Public Use
  Company Number: DE-BIOGEN-2021BI01069865

PATIENT
  Age: 45 Year
  Sex: Female

DRUGS (1)
  1. TECFIDERA [Suspect]
     Active Substance: DIMETHYL FUMARATE
     Indication: Product used for unknown indication
     Route: 048
     Dates: start: 20150715

REACTIONS (2)
  - Pelvic venous thrombosis [Recovered/Resolved]
  - Phlebitis [Not Recovered/Not Resolved]

NARRATIVE: CASE EVENT DATE: 20210901
